FAERS Safety Report 9454782 (Version 1)
Quarter: 2013Q3

REPORT INFORMATION
  Report Type: Spontaneous
  Country: US (occurrence: US)
  Receive Date: 20130812
  Receipt Date: 20130812
  Transmission Date: 20140515
  Serious: Yes (Hospitalization)
  Sender: FDA-Public Use
  Company Number: US-TMC-CABO-13003105

PATIENT
  Age: 88 Year
  Sex: Male
  Weight: 85 kg

DRUGS (1)
  1. COMETRIQ [Suspect]
     Indication: PLASMA CELL MYELOMA
     Dosage: 100 MG, QD
     Route: 048
     Dates: start: 20130306

REACTIONS (1)
  - Seizure like phenomena [Recovered/Resolved]
